FAERS Safety Report 7782894-5 (Version None)
Quarter: 2011Q3

REPORT INFORMATION
  Report Type: 
  Country: None (occurrence: None)
  Receive Date: 20110928
  Receipt Date: 20110920
  Transmission Date: 20111222
  Serious: Yes (Hospitalization, Other)
  Sender: FDA-Public Use
  Company Number: US-ASTELLAS-2011US003446

PATIENT
  Sex: Male
  Weight: 71 kg

DRUGS (21)
  1. SIROLIMUS [Suspect]
     Indication: PRODUCT USED FOR UNKNOWN INDICATION
     Dosage: UNK
     Route: 065
  2. PRAVACHOL [Concomitant]
     Indication: PRODUCT USED FOR UNKNOWN INDICATION
     Dosage: 10 MG, UID/QD
     Route: 048
  3. JANUVIA [Concomitant]
     Indication: DIABETES MELLITUS
     Dosage: 50 MG, BID
     Route: 048
  4. MYCOPHENOLATE MOFETIL (CELLCEPT) [Concomitant]
     Indication: HEART TRANSPLANT
     Dosage: 500 MG, BID
     Route: 048
  5. DELTASONE [Concomitant]
     Indication: PRODUCT USED FOR UNKNOWN INDICATION
     Dosage: 7.5 MG, UID/QD
     Route: 048
  6. PRILOSEC [Concomitant]
     Indication: PRODUCT USED FOR UNKNOWN INDICATION
     Dosage: 20 MG, UID/QD
     Route: 048
  7. PROGRAF [Suspect]
     Dosage: 1.5 MG, BID
     Route: 048
     Dates: start: 20100805, end: 20100908
  8. RITUXIMAB [Suspect]
     Indication: PRODUCT USED FOR UNKNOWN INDICATION
     Dosage: UNK
     Route: 065
  9. FEOSOL [Concomitant]
     Indication: PRODUCT USED FOR UNKNOWN INDICATION
     Dosage: 325 MG, BID
     Route: 065
  10. EPOGEN [Concomitant]
     Indication: PRODUCT USED FOR UNKNOWN INDICATION
     Dosage: 20000 U, UNKNOWN/D
     Route: 065
  11. MULTI-VITAMIN [Concomitant]
     Indication: PRODUCT USED FOR UNKNOWN INDICATION
     Dosage: 1 DF, UID/QD
     Route: 048
  12. PROGRAF [Suspect]
     Indication: HEART TRANSPLANT
     Dosage: 2 MG, BID
     Route: 048
     Dates: start: 20070131, end: 20100804
  13. PROGRAF [Suspect]
     Dosage: 1 MG, BID
     Route: 048
     Dates: start: 20100909, end: 20101006
  14. CATAPRES [Concomitant]
     Indication: PRODUCT USED FOR UNKNOWN INDICATION
     Dosage: 0.1 MG, UID/QD
     Route: 048
  15. PEPCID [Concomitant]
     Indication: PRODUCT USED FOR UNKNOWN INDICATION
     Dosage: 40 MG, UID/QD
     Route: 048
  16. SODIUM BICARBONATE [Concomitant]
     Indication: PRODUCT USED FOR UNKNOWN INDICATION
     Dosage: 650 MG, UID/QD
     Route: 048
  17. PREDNISONE [Concomitant]
     Indication: PRODUCT USED FOR UNKNOWN INDICATION
     Dosage: 7.5 MG, BID
     Route: 048
  18. MYCOPHENOLATE MOFETIL (CELLCEPT) [Concomitant]
     Dosage: 1500 MG, BID
     Route: 048
  19. CALCIUM CARBONATE [Concomitant]
     Indication: PRODUCT USED FOR UNKNOWN INDICATION
     Dosage: 500 MG, BID
     Route: 065
  20. FOSAMAX [Concomitant]
     Indication: PRODUCT USED FOR UNKNOWN INDICATION
     Dosage: 70 MG, WEEKLY
     Route: 048
  21. CYCLOSPORINE [Concomitant]
     Indication: HEART TRANSPLANT
     Dosage: UNK
     Route: 065
     Dates: end: 20070130

REACTIONS (40)
  - SUBDURAL HAEMORRHAGE [None]
  - ANAEMIA MACROCYTIC [None]
  - ABDOMINAL HERNIA REPAIR [None]
  - INFECTION [None]
  - RENAL FAILURE CHRONIC [None]
  - SYNCOPE [None]
  - ARTHRITIS BACTERIAL [None]
  - IMMUNOSUPPRESSION [None]
  - GENITAL HERPES [None]
  - LYMPHOPENIA [None]
  - INTERSTITIAL LUNG DISEASE [None]
  - RENAL FAILURE ACUTE [None]
  - HYPERLIPIDAEMIA [None]
  - ANEURYSM [None]
  - GASTRITIS [None]
  - FALL [None]
  - DECREASED APPETITE [None]
  - SKULL FRACTURE [None]
  - B-CELL LYMPHOMA [None]
  - DIVERTICULUM [None]
  - CARDIOVASCULAR DISORDER [None]
  - HEADACHE [None]
  - NEUTROPENIA [None]
  - DEHYDRATION [None]
  - SPLENOMEGALY [None]
  - NORMOCHROMIC NORMOCYTIC ANAEMIA [None]
  - CORONARY ARTERY DISEASE [None]
  - VIITH NERVE PARALYSIS [None]
  - OSTEOPENIA [None]
  - SEPSIS [None]
  - DIABETES MELLITUS [None]
  - BONE NEOPLASM MALIGNANT [None]
  - IMPLANTABLE DEFIBRILLATOR INSERTION [None]
  - CARDIAC PACEMAKER INSERTION [None]
  - RENAL MASS [None]
  - PULMONARY TOXICITY [None]
  - RENAL FAILURE [None]
  - CARDIAC FAILURE CONGESTIVE [None]
  - TREMOR [None]
  - POSTOPERATIVE WOUND INFECTION [None]
